FAERS Safety Report 4507374-1 (Version None)
Quarter: 2004Q4

REPORT INFORMATION
  Report Type: 
  Country: None (occurrence: None)
  Receive Date: 20041109
  Receipt Date: 20041029
  Transmission Date: 20050328
  Serious: Yes (Hospitalization)
  Sender: FDA-Public Use
  Company Number: ALB/04/02/USA

PATIENT
  Age: 51 Year
  Sex: Female
  Weight: 58.9676 kg

DRUGS (12)
  1. ALBUMIN (HUMAN) [Suspect]
     Indication: INFUSION
     Dosage: 5 ML, I.V.
     Route: 042
     Dates: start: 20040722, end: 20040722
  2. ALBUMIN (HUMAN) [Suspect]
  3. PANHEMATIN [Suspect]
     Indication: PORPHYRIA ACUTE
     Dosage: 40 MG, O.A.D.,  I.V.
     Route: 042
     Dates: start: 20040726, end: 20040731
  4. PANHEMATIN [Suspect]
  5. FOSAMAX [Concomitant]
  6. ALDACTONE [Concomitant]
  7. KYTRIL [Concomitant]
  8. MAXALT [Concomitant]
  9. AMBIEN [Concomitant]
  10. LEXAPRO (ANTIDEPRESSANTS) [Concomitant]
  11. PROTONIX [Concomitant]
  12. ZOFRAN [Concomitant]

REACTIONS (4)
  - BODY TEMPERATURE INCREASED [None]
  - FATIGUE [None]
  - PAIN [None]
  - STENOTROPHOMONAS INFECTION [None]
